FAERS Safety Report 9342363 (Version 1)
Quarter: 2013Q2

REPORT INFORMATION
  Report Type: Spontaneous
  Country: US (occurrence: None)
  Receive Date: 20130607
  Receipt Date: 20130607
  Transmission Date: 20140414
  Serious: Yes (Life-Threatening, Hospitalization)
  Sender: FDA-Public Use
  Company Number: USA/USA/13/0029932

PATIENT
  Age: 40 Year
  Sex: Male

DRUGS (10)
  1. FLUOXETINE [Suspect]
     Indication: PRODUCT USED FOR UNKNOWN INDICATION
     Route: 048
  2. AMLODIPINE BESYLATE [Suspect]
     Indication: PRODUCT USED FOR UNKNOWN INDICATION
  3. SIMVASTATIN [Suspect]
     Indication: PRODUCT USED FOR UNKNOWN INDICATION
  4. VERAPAMIL [Suspect]
     Indication: PRODUCT USED FOR UNKNOWN INDICATION
     Route: 048
  5. CARBAMAZEPINE [Suspect]
     Indication: PRODUCT USED FOR UNKNOWN INDICATION
     Route: 048
  6. ALCOHOL (ETHANOL) [Suspect]
     Indication: PRODUCT USED FOR UNKNOWN INDICATION
     Route: 048
  7. OXYCODONE [Suspect]
     Indication: PRODUCT USED FOR UNKNOWN INDICATION
     Route: 048
  8. VALSARTAN [Suspect]
     Indication: PRODUCT USED FOR UNKNOWN INDICATION
  9. METFORMIN [Suspect]
     Indication: PRODUCT USED FOR UNKNOWN INDICATION
  10. TRAZODONE [Suspect]
     Indication: PRODUCT USED FOR UNKNOWN INDICATION

REACTIONS (28)
  - Non-cardiogenic pulmonary oedema [None]
  - Shock [None]
  - Pneumonia aspiration [None]
  - Loss of consciousness [None]
  - Hypotension [None]
  - Lethargy [None]
  - Acute respiratory distress syndrome [None]
  - Hypoxia [None]
  - Renal failure acute [None]
  - Acute myocardial infarction [None]
  - Metabolic acidosis [None]
  - Alcohol withdrawal syndrome [None]
  - Drug withdrawal syndrome [None]
  - Suicide attempt [None]
  - Intentional overdose [None]
  - Alcohol poisoning [None]
  - Sedation [None]
  - Blood potassium decreased [None]
  - Carbon dioxide decreased [None]
  - Hyperglycaemia [None]
  - Blood calcium increased [None]
  - Blood magnesium increased [None]
  - Blood creatine phosphokinase increased [None]
  - Atelectasis [None]
  - Hyperdynamic left ventricle [None]
  - Atrioventricular block first degree [None]
  - Toxicity to various agents [None]
  - Blood pressure increased [None]
